FAERS Safety Report 21766851 (Version 1)
Quarter: 2022Q4

REPORT INFORMATION
  Report Type: Spontaneous
  Country: US (occurrence: US)
  Receive Date: 20221222
  Receipt Date: 20221222
  Transmission Date: 20230113
  Serious: No
  Sender: FDA-Public Use
  Company Number: US-drreddys-SPO/USA/22/0158042

PATIENT
  Age: 45 Year

DRUGS (1)
  1. ZENATANE [Suspect]
     Active Substance: ISOTRETINOIN
     Indication: Acne
     Dosage: RMA ISSUE DATE: 30 SEPTEMBER 2022 03:25:19 PM; 04 NOVEMBER 2022 04:24:11 PM

REACTIONS (1)
  - Adverse drug reaction [Unknown]
